FAERS Safety Report 25675554 (Version 1)
Quarter: 2025Q3

REPORT INFORMATION
  Report Type: Spontaneous
  Country: EU (occurrence: EU)
  Receive Date: 20250813
  Receipt Date: 20250813
  Transmission Date: 20251021
  Serious: Yes (Life-Threatening, Hospitalization)
  Sender: MYLAN
  Company Number: EU-MYLANLABS-2025M1068011

PATIENT
  Age: 62 Year
  Sex: Male

DRUGS (8)
  1. TICAGRELOR [Suspect]
     Active Substance: TICAGRELOR
     Indication: Acute myocardial infarction
  2. TICAGRELOR [Suspect]
     Active Substance: TICAGRELOR
     Route: 065
  3. TICAGRELOR [Suspect]
     Active Substance: TICAGRELOR
     Route: 065
  4. TICAGRELOR [Suspect]
     Active Substance: TICAGRELOR
  5. ASPIRIN [Suspect]
     Active Substance: ASPIRIN
     Indication: Acute myocardial infarction
  6. ASPIRIN [Suspect]
     Active Substance: ASPIRIN
     Route: 065
  7. ASPIRIN [Suspect]
     Active Substance: ASPIRIN
     Route: 065
  8. ASPIRIN [Suspect]
     Active Substance: ASPIRIN

REACTIONS (1)
  - Drug ineffective [Unknown]
